FAERS Safety Report 8507784-1 (Version None)
Quarter: 2012Q3

REPORT INFORMATION
  Report Type: 
  Country: None (occurrence: None)
  Receive Date: 20120713
  Receipt Date: 20120706
  Transmission Date: 20120928
  Serious: Yes (Hospitalization, Other)
  Sender: FDA-Public Use
  Company Number: PHHY2012FR058077

PATIENT
  Age: 94 Year
  Sex: Male

DRUGS (9)
  1. ATACAND [Concomitant]
  2. PERMIXON [Concomitant]
  3. STABLON [Concomitant]
  4. VITAMIN D [Concomitant]
  5. BISOPROLOL FUMARATE [Interacting]
     Dosage: 10 MG, UNK
  6. PERIDYS [Concomitant]
  7. ZOLPIDEM [Concomitant]
  8. ACETAMINOPHEN [Concomitant]
  9. EXELON [Suspect]
     Indication: DEMENTIA ALZHEIMER'S TYPE
     Route: 048
     Dates: start: 20120331, end: 20120404

REACTIONS (6)
  - ELECTROCARDIOGRAM QT PROLONGED [None]
  - BRADYCARDIA [None]
  - FALL [None]
  - TORSADE DE POINTES [None]
  - DRUG INTERACTION [None]
  - LOSS OF CONSCIOUSNESS [None]
